FAERS Safety Report 24273285 (Version 1)
Quarter: 2024Q3

REPORT INFORMATION
  Report Type: Spontaneous
  Country: CN (occurrence: CN)
  Receive Date: 20240902
  Receipt Date: 20240902
  Transmission Date: 20241017
  Serious: Yes (Other)
  Sender: MACLEODS
  Company Number: CN-MACLEODS PHARMA-MAC2024049091

PATIENT

DRUGS (2)
  1. TENOFOVIR ALAFENAMIDE [Suspect]
     Active Substance: TENOFOVIR ALAFENAMIDE
     Indication: Chronic hepatitis B
     Route: 048
  2. PEGINTERFERON ALFA-2B [Suspect]
     Active Substance: PEGINTERFERON ALFA-2B
     Indication: Chronic hepatitis B
     Dosage: 180 UG/1.73 M2
     Route: 058

REACTIONS (7)
  - Growth retardation [Unknown]
  - Cytopenia [Unknown]
  - Pyrexia [Unknown]
  - Myalgia [Unknown]
  - Decreased appetite [Unknown]
  - Alanine aminotransferase increased [Unknown]
  - Fatigue [Unknown]
